FAERS Safety Report 4864778-5 (Version None)
Quarter: 2005Q4

REPORT INFORMATION
  Report Type: 
  Country: None (occurrence: None)
  Receive Date: 20051222
  Receipt Date: 20050928
  Transmission Date: 20060501
  Serious: Yes (Hospitalization, Disabling)
  Sender: FDA-Public Use
  Company Number: CA-MERCK-0509CAN00197

PATIENT
  Age: 60 Year
  Sex: Male
  Weight: 77 kg

DRUGS (10)
  1. VIOXX [Suspect]
     Indication: BACK PAIN
     Route: 048
     Dates: start: 20000217, end: 20040701
  2. VIOXX [Suspect]
     Indication: SCIATICA
     Route: 048
     Dates: start: 20000217, end: 20040701
  3. LORAZEPAM [Concomitant]
     Indication: ANXIETY
     Route: 065
  4. PENTAZOCINE LACTATE [Concomitant]
     Indication: ARTHRITIS
     Route: 065
     Dates: start: 20030701
  5. PENTAZOCINE LACTATE [Concomitant]
     Indication: BACK PAIN
     Route: 065
     Dates: start: 20030701
  6. CELECOXIB [Concomitant]
     Route: 065
     Dates: start: 20000101, end: 20000201
  7. CELECOXIB [Concomitant]
     Route: 065
     Dates: start: 20000201, end: 20000601
  8. METHYLPREDNISOLONE ACETATE [Concomitant]
     Route: 065
  9. DICLOFENAC [Concomitant]
     Route: 065
  10. KETOPROFEN [Concomitant]
     Route: 065

REACTIONS (9)
  - ANXIETY [None]
  - BLOOD CHOLESTEROL INCREASED [None]
  - CHEST DISCOMFORT [None]
  - ELECTROCARDIOGRAM ST SEGMENT ELEVATION [None]
  - FLATULENCE [None]
  - HYPERTENSION [None]
  - LOW DENSITY LIPOPROTEIN INCREASED [None]
  - MYOCARDIAL INFARCTION [None]
  - TRANSIENT ISCHAEMIC ATTACK [None]
